FAERS Safety Report 6237181-3 (Version None)
Quarter: 2009Q2

REPORT INFORMATION
  Report Type: 
  Country: None (occurrence: None)
  Receive Date: 20090619
  Receipt Date: 20090610
  Transmission Date: 20091009
  Serious: Yes (Life-Threatening, Other)
  Sender: FDA-Public Use
  Company Number: JP-PFIZER INC-A214500

PATIENT
  Age: 39 Year

DRUGS (2)
  1. DOXAZOSIN MESYLATE [Suspect]
     Indication: CARDIOVASCULAR DISORDER
     Dosage: DAILY
     Route: 048
     Dates: start: 20010307, end: 20010309
  2. NIFEDIPINE [Concomitant]
     Route: 060
     Dates: start: 20010201, end: 20010308

REACTIONS (1)
  - PHAEOCHROMOCYTOMA [None]
